FAERS Safety Report 5089919-9 (Version None)
Quarter: 2006Q3

REPORT INFORMATION
  Report Type: 
  Country: None (occurrence: None)
  Receive Date: 20060823
  Receipt Date: 20060803
  Transmission Date: 20061208
  Serious: Yes (Death)
  Sender: FDA-Public Use
  Company Number: US200607002963

PATIENT
  Age: 48 Year
  Sex: Male
  Weight: 120.2 kg

DRUGS (10)
  1. CYMBALTA [Suspect]
     Indication: PAIN
     Dosage: 30 MG
     Dates: start: 20041122
  2. THORAZINE [Concomitant]
  3. NEXIUM [Concomitant]
  4. IBUPROFEN [Concomitant]
  5. ALBUTEROL [Concomitant]
  6. MIRALAX [Concomitant]
  7. SYNTHROID [Concomitant]
  8. TARKA [Concomitant]
  9. METHADONE HCL [Concomitant]
  10. VALIUM /NET/(DIAZEPAM) [Concomitant]

REACTIONS (4)
  - COMPLETED SUICIDE [None]
  - DRUG ABUSER [None]
  - OVERDOSE [None]
  - SUDDEN DEATH [None]
